FAERS Safety Report 11885043 (Version 2)
Quarter: 2016Q1

REPORT INFORMATION
  Report Type: Spontaneous
  Country: IT (occurrence: IT)
  Receive Date: 20160104
  Receipt Date: 20160330
  Transmission Date: 20160526
  Serious: Yes (Other)
  Sender: FDA-Public Use
  Company Number: IT-TEVA-622743ISR

PATIENT
  Age: 38 Year
  Sex: Female

DRUGS (3)
  1. EPIRUBICIN [Suspect]
     Active Substance: EPIRUBICIN
     Indication: CHEMOTHERAPY
  2. DEXAMETHASONE. [Interacting]
     Active Substance: DEXAMETHASONE
     Dosage: 12 MILLIGRAM DAILY;
  3. CYCLOPHOSPHAMIDE. [Concomitant]
     Active Substance: CYCLOPHOSPHAMIDE
     Indication: CHEMOTHERAPY

REACTIONS (4)
  - Cardiotoxicity [Not Recovered/Not Resolved]
  - Foetal death [Unknown]
  - Drug interaction [Not Recovered/Not Resolved]
  - Exposure during pregnancy [Unknown]
